FAERS Safety Report 4315238-1 (Version None)
Quarter: 2004Q1

REPORT INFORMATION
  Report Type: 
  Country: None (occurrence: None)
  Receive Date: 20040309
  Receipt Date: 20040225
  Transmission Date: 20041129
  Serious: Yes (Hospitalization)
  Sender: FDA-Public Use
  Company Number: CO-JNJFOC-20040300682

PATIENT
  Age: 46 Year
  Sex: Female

DRUGS (5)
  1. REMICADE [Suspect]
     Indication: RHEUMATOID ARTHRITIS
     Dosage: 200 MG, IN 1 DAY, INTRAVENOUS
     Route: 042
     Dates: start: 20030528, end: 20031104
  2. METHOTREXATE [Concomitant]
  3. PREDNISOLONE [Concomitant]
  4. LEFLUNOMIDE [Concomitant]
  5. OMEPRAZOLE [Concomitant]

REACTIONS (1)
  - CERVIX CARCINOMA [None]
